FAERS Safety Report 12780450 (Version 1)
Quarter: 2016Q3

REPORT INFORMATION
  Report Type: Spontaneous
  Country: GB (occurrence: GB)
  Receive Date: 20160926
  Receipt Date: 20160926
  Transmission Date: 20161109
  Serious: Yes (Other)
  Sender: FDA-Public Use
  Company Number: GB-PFIZER INC-2016444135

PATIENT
  Sex: Male

DRUGS (2)
  1. DIAZEPAM. [Interacting]
     Active Substance: DIAZEPAM
     Dosage: UNK
  2. LYRICA [Suspect]
     Active Substance: PREGABALIN
     Dosage: UNK

REACTIONS (4)
  - Drug abuse [Unknown]
  - Abnormal behaviour [Unknown]
  - Drug interaction [Unknown]
  - Thinking abnormal [Unknown]
